FAERS Safety Report 23854584 (Version 1)
Quarter: 2024Q2

REPORT INFORMATION
  Report Type: Report from Study
  Country: US (occurrence: US)
  Receive Date: 20240514
  Receipt Date: 20240514
  Transmission Date: 20240716
  Serious: Yes (Hospitalization)
  Sender: FDA-Public Use
  Company Number: US-Eisai-EC-2024-165288

PATIENT
  Age: 76 Year
  Sex: Male
  Weight: 72.7 kg

DRUGS (7)
  1. LENVIMA [Suspect]
     Active Substance: LENVATINIB
     Indication: Renal cancer
     Route: 048
     Dates: start: 20240501, end: 20240505
  2. BREO ELLIPTA [Concomitant]
     Active Substance: FLUTICASONE FUROATE\VILANTEROL TRIFENATATE
  3. ALLOPURINOL [Concomitant]
     Active Substance: ALLOPURINOL
     Route: 048
  4. ELIQUIS [Concomitant]
     Active Substance: APIXABAN
     Route: 048
  5. MIDODRINE HYDROCHLORIDE [Concomitant]
     Active Substance: MIDODRINE HYDROCHLORIDE
     Route: 048
  6. PROCHLORPERAZINE [Concomitant]
     Active Substance: PROCHLORPERAZINE
  7. KEYTRUDA [Concomitant]
     Active Substance: PEMBROLIZUMAB
     Dosage: 100MG/4ML

REACTIONS (1)
  - Diarrhoea [Unknown]

NARRATIVE: CASE EVENT DATE: 20240505
